FAERS Safety Report 7283766-5 (Version None)
Quarter: 2011Q1

REPORT INFORMATION
  Report Type: 
  Country: None (occurrence: None)
  Receive Date: 20110209
  Receipt Date: 20110204
  Transmission Date: 20110831
  Serious: Yes (Life-Threatening)
  Sender: FDA-Public Use
  Company Number: CO-SANOFI-AVENTIS-2011SA007800

PATIENT
  Age: 63 Year
  Sex: Female

DRUGS (3)
  1. LOSARTAN POTASSIUM [Concomitant]
     Route: 048
  2. ASPIRIN [Concomitant]
     Route: 048
  3. PLAVIX [Suspect]
     Route: 048
     Dates: start: 20101231, end: 20110128

REACTIONS (3)
  - CARDIAC FIBRILLATION [None]
  - ASPHYXIA [None]
  - CHEST PAIN [None]
